FAERS Safety Report 16064504 (Version 2)
Quarter: 2019Q4

REPORT INFORMATION
  Report Type: Spontaneous
  Country: US (occurrence: US)
  Receive Date: 20190312
  Receipt Date: 20191011
  Transmission Date: 20200122
  Serious: Yes (Other)
  Sender: FDA-Public Use
  Company Number: US-ELI_LILLY_AND_COMPANY-US201903004186

PATIENT
  Sex: Male

DRUGS (3)
  1. VIAGRA [Suspect]
     Active Substance: SILDENAFIL CITRATE
     Indication: ERECTILE DYSFUNCTION
     Dosage: 100 MG, WEEKLY (1/W)
     Route: 065
     Dates: start: 2000, end: 2008
  2. CIALIS [Suspect]
     Active Substance: TADALAFIL
     Indication: ERECTILE DYSFUNCTION
     Dosage: 20 MG, WEEKLY (1/W)
     Route: 065
     Dates: start: 20080114, end: 20100222
  3. VIAGRA [Suspect]
     Active Substance: SILDENAFIL CITRATE
     Dosage: 100 MG, WEEKLY (1/W)
     Route: 065
     Dates: start: 2010, end: 2018

REACTIONS (11)
  - Coronary artery disease [Unknown]
  - Hypothyroidism [Recovered/Resolved]
  - Diabetes mellitus [Recovered/Resolved]
  - Vitamin D deficiency [Recovered/Resolved]
  - Malignant melanoma [Unknown]
  - Vitamin B12 deficiency [Recovered/Resolved]
  - Sleep apnoea syndrome [Recovered/Resolved]
  - Chronic kidney disease [Recovered/Resolved]
  - Dyslipidaemia [Recovered/Resolved]
  - Squamous cell carcinoma [Not Recovered/Not Resolved]
  - Hypertension [Recovered/Resolved]

NARRATIVE: CASE EVENT DATE: 2000
